FAERS Safety Report 24023002 (Version 11)
Quarter: 2024Q3

REPORT INFORMATION
  Report Type: Report from Study
  Country: CN (occurrence: CN)
  Receive Date: 20240627
  Receipt Date: 20240710
  Transmission Date: 20241016
  Serious: No
  Sender: ROCHE
  Company Number: CN-ROCHE-3051003

PATIENT
  Age: 57 Year
  Sex: Female
  Weight: 60.5 kg

DRUGS (35)
  1. ALECTINIB [Suspect]
     Active Substance: ALECTINIB
     Indication: Non-small cell lung cancer metastatic
     Route: 048
     Dates: start: 20211126
  2. ALECTINIB [Suspect]
     Active Substance: ALECTINIB
     Route: 048
     Dates: start: 20181019
  3. SITAGLIPTIN PHOSPHATE [Concomitant]
     Active Substance: SITAGLIPTIN PHOSPHATE
     Indication: Type 2 diabetes mellitus
     Route: 048
     Dates: start: 2020
  4. ZOLEDRONIC ACID [Concomitant]
     Active Substance: ZOLEDRONIC ACID
     Indication: Metastases to bone
     Route: 050
     Dates: start: 20220223, end: 20220223
  5. ZOLEDRONIC ACID [Concomitant]
     Active Substance: ZOLEDRONIC ACID
     Route: 050
     Dates: start: 20220322, end: 20220322
  6. HERBALS [Concomitant]
     Active Substance: HERBALS
     Route: 050
     Dates: start: 20220320, end: 20220324
  7. HERBALS [Concomitant]
     Active Substance: HERBALS
     Route: 050
     Dates: start: 20220426, end: 20220429
  8. HERBALS [Concomitant]
     Active Substance: HERBALS
     Route: 050
     Dates: start: 20220518, end: 20220519
  9. HERBALS [Concomitant]
     Active Substance: HERBALS
     Route: 050
     Dates: start: 20220615, end: 20220618
  10. HERBALS [Concomitant]
     Active Substance: HERBALS
     Route: 050
     Dates: start: 20220719, end: 20220721
  11. HERBALS [Concomitant]
     Active Substance: HERBALS
     Route: 050
     Dates: start: 20220802, end: 20220804
  12. HERBALS [Concomitant]
     Active Substance: HERBALS
     Route: 050
     Dates: start: 20220829, end: 20220902
  13. ATORVASTATIN CALCIUM [Concomitant]
     Active Substance: ATORVASTATIN CALCIUM
     Route: 048
     Dates: start: 20220426, end: 20220429
  14. CEFDINIR [Concomitant]
     Active Substance: CEFDINIR
     Route: 048
     Dates: start: 20220320, end: 20220324
  15. CEFDINIR [Concomitant]
     Active Substance: CEFDINIR
     Route: 048
     Dates: start: 20220615, end: 20220618
  16. PAMIDRONATE DISODIUM AND GLUCOSE [Concomitant]
     Indication: Metastases to bone
     Dosage: TREATMENT OF BONE METASTASES
     Route: 050
     Dates: start: 20220426, end: 20220427
  17. PAMIDRONATE DISODIUM AND GLUCOSE [Concomitant]
     Dosage: TREATMENT OF BONE METASTASES
     Route: 050
     Dates: start: 20220518, end: 20220519
  18. PAMIDRONATE DISODIUM AND GLUCOSE [Concomitant]
     Dosage: TREATMENT OF BONE METASTASES
     Route: 050
     Dates: start: 20220927, end: 20220928
  19. PAMIDRONATE DISODIUM AND GLUCOSE [Concomitant]
     Route: 042
     Dates: start: 20230322, end: 20230322
  20. LIVE COMBINED BIFIDOBACTERIUM, LACTOBACILLUS AND ENTEROCOCCUS [Concomitant]
     Dosage: SYMPTOMATIC TREATMENT OF DIARRHEA
     Route: 048
     Dates: start: 20220426, end: 20220429
  21. SODIUM BICARBONATE [Concomitant]
     Active Substance: SODIUM BICARBONATE
     Route: 048
     Dates: start: 20220615, end: 20220618
  22. MANNATIDE [Concomitant]
     Dosage: INCRASING IMMUNNITY
     Route: 050
     Dates: start: 20220927, end: 20220930
  23. HERBALS [Concomitant]
     Active Substance: HERBALS
     Route: 050
     Dates: start: 20221225, end: 20221227
  24. IBUPROFEN [Concomitant]
     Active Substance: IBUPROFEN
     Route: 048
     Dates: start: 20221225, end: 20221227
  25. CODEINE PHOSPHATE AND PLATYCODON TABLETS [Concomitant]
     Route: 048
     Dates: start: 20221225, end: 20221228
  26. CEFOTAXIME SODIUM [Concomitant]
     Active Substance: CEFOTAXIME SODIUM
     Route: 050
     Dates: start: 20221227, end: 20230104
  27. AMBROXOL HYDROCHLORIDE [Concomitant]
     Active Substance: AMBROXOL HYDROCHLORIDE
     Route: 042
     Dates: start: 20221228, end: 20230104
  28. ACETYLCYSTEINE [Concomitant]
     Active Substance: ACETYLCYSTEINE
     Route: 048
     Dates: start: 20221217, end: 20230104
  29. MANNATIDE [Concomitant]
     Route: 050
     Dates: start: 20221225, end: 20221227
  30. RABEPRAZOLE SODIUM [Concomitant]
     Active Substance: RABEPRAZOLE SODIUM
     Dosage: ENTERIC-COATED CAPSULES
     Route: 048
     Dates: start: 20220721, end: 20220725
  31. RABEPRAZOLE SODIUM [Concomitant]
     Active Substance: RABEPRAZOLE SODIUM
     Dosage: ENTERIC CAPSULE
     Route: 048
     Dates: start: 20230426, end: 202305
  32. HEART TREASURE PILL [Concomitant]
     Indication: Heart rate
     Route: 048
     Dates: start: 20230828
  33. HERBALS [Concomitant]
     Active Substance: HERBALS
     Indication: Hepatic steatosis
     Dosage: SUBSEQUENT DOSE ON 20-MAR-2023/23-MAR-2023, 24-APR-2023/26-APR-2023, 30-MAY-2023/31-MAY-2023, :19-JU
     Route: 042
     Dates: start: 20230130, end: 20230201
  34. LEVOFLOXACIN LACTATE [Concomitant]
     Active Substance: LEVOFLOXACIN LACTATE
     Route: 048
     Dates: start: 20230302, end: 202304
  35. PHOSPHOLIPID [Concomitant]
     Active Substance: PHOSPHOLIPID
     Indication: Hepatic steatosis
     Route: 048
     Dates: start: 20230301, end: 20230302

REACTIONS (1)
  - Blood bilirubin increased [Recovered/Resolved]

NARRATIVE: CASE EVENT DATE: 20220223
